FAERS Safety Report 9548308 (Version 2)
Quarter: 2013Q3

REPORT INFORMATION
  Report Type: Spontaneous
  Country: JP (occurrence: JP)
  Receive Date: 20130924
  Receipt Date: 20130924
  Transmission Date: 20140515
  Serious: Yes (Death, Hospitalization)
  Sender: FDA-Public Use
  Company Number: JP-ASTRAZENECA-2013SE50466

PATIENT
  Age: 83 Year
  Sex: Female

DRUGS (16)
  1. NEXIUM [Suspect]
     Route: 048
  2. OMEPRAL [Suspect]
     Indication: MELAENA
     Route: 041
     Dates: start: 20130626, end: 20130701
  3. TRANSAMIN [Concomitant]
     Indication: MELAENA
     Route: 041
     Dates: start: 20130626, end: 20130701
  4. ADONA [Concomitant]
     Indication: MELAENA
     Route: 041
     Dates: start: 20130626, end: 20130701
  5. ADALAT-CR [Concomitant]
     Route: 048
  6. PLETAAL [Concomitant]
     Route: 048
  7. MICARDIS [Concomitant]
     Route: 048
  8. BUP-4 [Concomitant]
     Route: 048
  9. DEPAS [Concomitant]
     Route: 048
  10. ANPLAG [Concomitant]
     Route: 048
  11. MYSLEE [Concomitant]
     Route: 048
  12. LIXIANA [Concomitant]
     Route: 048
  13. LOXONIN [Concomitant]
     Route: 048
  14. MUCOSTA [Concomitant]
     Route: 048
  15. SOLYUGEN F [Concomitant]
     Indication: MELAENA
     Dosage: 500 ML NUMBER OF SEPARATE DOSAGES UNKNOWN
     Route: 041
     Dates: start: 20130626
  16. SOLDEM 3A [Concomitant]
     Indication: MELAENA
     Dosage: 1000 ML, NUMBER OF SEPARATE DOSAGES UNKNOWN
     Route: 041
     Dates: start: 20130626

REACTIONS (2)
  - Colon cancer [Fatal]
  - Hyponatraemia [Recovered/Resolved]
